FAERS Safety Report 9437001 (Version 2)
Quarter: 2013Q3

REPORT INFORMATION
  Report Type: Spontaneous
  Country: CN (occurrence: CN)
  Receive Date: 20130802
  Receipt Date: 20130808
  Transmission Date: 20140515
  Serious: Yes (Other)
  Sender: FDA-Public Use
  Company Number: CN-PFIZER INC-2013222789

PATIENT
  Age: 56 Year
  Sex: Female
  Weight: 49.5 kg

DRUGS (3)
  1. PHARMORUBICIN [Suspect]
     Indication: BREAST CANCER
     Dosage: 130 MG/M2, 1X/DAY
     Route: 041
     Dates: start: 20121103, end: 20121103
  2. CYCLOPHOSPHAMIDE [Concomitant]
     Indication: BREAST CANCER
     Dosage: 600 MG/M2, 1X/DAY
     Route: 041
     Dates: start: 20121103, end: 20121103
  3. FLOXURIDINE [Concomitant]
     Indication: BREAST CANCER
     Dosage: 600 MG/M2, 1X/DAY
     Route: 041
     Dates: start: 20121103, end: 20121103

REACTIONS (3)
  - Bone marrow failure [Recovering/Resolving]
  - Asthenia [Recovering/Resolving]
  - Bone pain [Recovering/Resolving]
